FAERS Safety Report 5159341-5 (Version None)
Quarter: 2006Q4

REPORT INFORMATION
  Report Type: 
  Country: None (occurrence: None)
  Receive Date: 20061120
  Receipt Date: 20061107
  Transmission Date: 20070319
  Serious: Yes (Death)
  Sender: FDA-Public Use
  Company Number: 232243

PATIENT
  Age: 62 Year
  Sex: Male

DRUGS (8)
  1. RITUXAN [Suspect]
     Indication: NON-HODGKIN'S LYMPHOMA
     Dates: start: 20020101
  2. DOXORUBICIN HCL [Concomitant]
  3. CYCLOPHOSPHAMIDE [Concomitant]
  4. ONCOVIN [Concomitant]
  5. PREDNISOLONE [Concomitant]
  6. CARBOPLATIN [Concomitant]
  7. ETOPOSIDE [Concomitant]
  8. SULFASALAZINE [Concomitant]

REACTIONS (6)
  - ANOREXIA [None]
  - EPSTEIN-BARR VIRUS INFECTION [None]
  - GASTRIC NEOPLASM [None]
  - GASTROINTESTINAL HAEMORRHAGE [None]
  - LYMPHADENOPATHY [None]
  - LYMPHOPROLIFERATIVE DISORDER [None]
